FAERS Safety Report 16967182 (Version 1)
Quarter: 2019Q4

REPORT INFORMATION
  Report Type: Spontaneous
  Country: AR (occurrence: AR)
  Receive Date: 20191028
  Receipt Date: 20191028
  Transmission Date: 20200122
  Serious: Yes (Other)
  Sender: FDA-Public Use
  Company Number: AR-BAYER-2019-191792

PATIENT
  Age: 54 Year
  Sex: Male

DRUGS (3)
  1. NEXAVAR [Suspect]
     Active Substance: SORAFENIB
     Indication: HEPATOCELLULAR CARCINOMA
     Dosage: DOSE REDUCED
     Dates: start: 20181002, end: 20191008
  2. NEXAVAR [Suspect]
     Active Substance: SORAFENIB
     Indication: HEPATOCELLULAR CARCINOMA
     Dosage: DAILY DOSE 800 MG
     Dates: start: 20180605
  3. NEXAVAR [Suspect]
     Active Substance: SORAFENIB
     Indication: HEPATOCELLULAR CARCINOMA
     Dosage: DAILY DOSE 160 MG
     Dates: start: 20190109

REACTIONS (11)
  - Skin reaction [None]
  - Asthenia [None]
  - Oral disorder [None]
  - Alopecia [None]
  - Decreased appetite [None]
  - Abdominal pain [None]
  - Hepatocellular carcinoma [None]
  - Diarrhoea [None]
  - Skin toxicity [None]
  - Palmar-plantar erythrodysaesthesia syndrome [None]
  - Portal vein thrombosis [None]

NARRATIVE: CASE EVENT DATE: 2018
